FAERS Safety Report 10086529 (Version 2)
Quarter: 2014Q2

REPORT INFORMATION
  Report Type: Spontaneous
  Country: US (occurrence: US)
  Receive Date: 20140418
  Receipt Date: 20140425
  Transmission Date: 20141212
  Serious: No
  Sender: FDA-Public Use
  Company Number: US-009507513-1404USA000758

PATIENT
  Sex: Female
  Weight: 55.78 kg

DRUGS (7)
  1. OXYTROL FOR WOMEN [Suspect]
     Indication: INCONTINENCE
     Dosage: UNK, UNKNOWN
     Route: 062
  2. OXYTROL FOR WOMEN [Suspect]
     Indication: HYPERTONIC BLADDER
  3. INSULIN [Concomitant]
     Indication: DIABETES MELLITUS
     Dosage: UNK, UNKNOWN
  4. WARFARIN [Concomitant]
     Indication: TRANSIENT ISCHAEMIC ATTACK
     Dosage: UNK, UNKNOWN
  5. AMLODIPINE BESYLATE (+) HYDROCHLOROTHIAZIDE [Concomitant]
     Indication: HYPERTENSION
     Dosage: UNK, UNKNOWN
  6. LOVASTATIN [Concomitant]
     Indication: BLOOD CHOLESTEROL
     Dosage: UNK, UNKNOWN
  7. ASPIRIN [Concomitant]
     Indication: PRODUCT USED FOR UNKNOWN INDICATION
     Dosage: 81 MG, UNKNOWN

REACTIONS (2)
  - Dizziness [Unknown]
  - Product adhesion issue [Unknown]
